FAERS Safety Report 5670210-4 (Version None)
Quarter: 2008Q1

REPORT INFORMATION
  Report Type: 
  Country: None (occurrence: None)
  Receive Date: 20080317
  Receipt Date: 20080311
  Transmission Date: 20080703
  Serious: No
  Sender: FDA-Public Use
  Company Number: US-BAXTER-2008BH002255

PATIENT
  Age: 67 Year
  Sex: Female

DRUGS (2)
  1. HEPARIN SODIUM [Suspect]
     Indication: TRANSIENT ISCHAEMIC ATTACK
     Dosage: DOSE UNIT:UNKNOWN
     Route: 058
     Dates: start: 20080220, end: 20080221
  2. TETRACYCLINE [Concomitant]
     Indication: INFECTION
     Route: 048
     Dates: start: 20080220

REACTIONS (2)
  - HEADACHE [None]
  - VOMITING [None]
